FAERS Safety Report 7340488-X (Version None)
Quarter: 2011Q1

REPORT INFORMATION
  Report Type: 
  Country: None (occurrence: None)
  Receive Date: 20110309
  Receipt Date: 20110303
  Transmission Date: 20110831
  Serious: Yes (Other)
  Sender: FDA-Public Use
  Company Number: CO-PFIZER INC-2011047895

PATIENT
  Sex: Female

DRUGS (8)
  1. FOLIC ACID [Concomitant]
     Dosage: UNK
     Route: 048
  2. PREDNISOLONE [Concomitant]
     Dosage: 5 MG, 1X/DAY
     Route: 048
  3. ENALAPRIL [Concomitant]
     Indication: HYPERTENSION
     Dosage: UNK
     Route: 048
  4. FLUOXETINE [Concomitant]
     Indication: AFFECTIVE DISORDER
     Dosage: 20 MG, 1X/DAY
     Route: 048
  5. CYCLOPHOSPHAMIDE [Concomitant]
     Indication: POLYMYOSITIS
     Route: 048
  6. LYRICA [Suspect]
     Indication: FIBROMYALGIA
  7. HYDROCHLOROTHIAZIDE [Concomitant]
     Indication: HYPERTENSION
     Dosage: UNK
     Route: 048
  8. LYRICA [Suspect]
     Indication: PAIN
     Dosage: 150 MG, 1X/DAY
     Route: 048
     Dates: start: 20050101

REACTIONS (2)
  - QUALITY OF LIFE DECREASED [None]
  - POLYMYOSITIS [None]
